FAERS Safety Report 24571082 (Version 2)
Quarter: 2024Q4

REPORT INFORMATION
  Report Type: Spontaneous
  Country: FR (occurrence: FR)
  Receive Date: 20241101
  Receipt Date: 20241112
  Transmission Date: 20250114
  Serious: Yes (Hospitalization)
  Sender: AUROBINDO
  Company Number: FR-GILEAD-2024-0691246

PATIENT
  Sex: Male
  Weight: 73 kg

DRUGS (2)
  1. CARBOPLATIN [Suspect]
     Active Substance: CARBOPLATIN
     Indication: Transitional cell carcinoma metastatic
     Dosage: 5 AUC, D1 EVERY 21 DAYS
     Route: 042
     Dates: start: 20240530
  2. GEMCITABINE [Suspect]
     Active Substance: GEMCITABINE
     Indication: Transitional cell carcinoma metastatic
     Dosage: 1000 MG/M2, D1 AND D8 EVERY 21 DAYS
     Route: 042
     Dates: start: 20240530

REACTIONS (2)
  - Troponin increased [Not Recovered/Not Resolved]
  - Ischaemic cardiomyopathy [Recovered/Resolved with Sequelae]

NARRATIVE: CASE EVENT DATE: 20241015
